FAERS Safety Report 10983814 (Version 1)
Quarter: 2015Q2

REPORT INFORMATION
  Report Type: Spontaneous
  Country: HR (occurrence: None)
  Receive Date: 20150401
  Receipt Date: 20150401
  Transmission Date: 20150821
  Serious: Yes (Life-Threatening)
  Sender: FDA-Public Use
  Company Number: FK201501534

PATIENT
  Age: 74 Year
  Sex: Female

DRUGS (5)
  1. MERONEM (MEROPENEM TRIHYDRATE) [Suspect]
     Active Substance: MEROPENEM
     Indication: CITROBACTER INFECTION
     Route: 042
     Dates: start: 20141118, end: 20141124
  2. VANCOMYCIN [Suspect]
     Active Substance: VANCOMYCIN
     Indication: STAPHYLOCOCCAL INFECTION
     Route: 042
     Dates: start: 20141101, end: 20141122
  3. PIPERACILLIN AND TAZOBACTAM [Suspect]
     Active Substance: PIPERACILLIN SODIUM\TAZOBACTAM SODIUM
     Indication: CITROBACTER INFECTION
     Dates: start: 20141101, end: 20141115
  4. CONTROLOC (PANTOPRAZOLE) [Concomitant]
  5. FRAXIPARINE (NADROPARIN) [Concomitant]

REACTIONS (2)
  - Drug interaction [None]
  - Toxic epidermal necrolysis [None]

NARRATIVE: CASE EVENT DATE: 20141121
